FAERS Safety Report 9398356 (Version 1)
Quarter: 2013Q3

REPORT INFORMATION
  Report Type: Spontaneous
  Country: US (occurrence: US)
  Receive Date: 20130712
  Receipt Date: 20130712
  Transmission Date: 20140515
  Serious: Yes (Other)
  Sender: FDA-Public Use
  Company Number: US-GLAXOSMITHKLINE-A1008211A

PATIENT
  Age: 11 Year
  Sex: Female

DRUGS (5)
  1. FLOVENT [Suspect]
     Indication: PRODUCT USED FOR UNKNOWN INDICATION
     Dosage: 1PUFF TWICE PER DAY
     Route: 055
     Dates: start: 20130109
  2. ATROVENT [Concomitant]
  3. ZITHROMAX [Concomitant]
  4. PEPCID [Concomitant]
  5. MOTRIN [Concomitant]

REACTIONS (2)
  - Hypersensitivity [Unknown]
  - Rash [Unknown]
